FAERS Safety Report 10144107 (Version 1)
Quarter: 2014Q2

REPORT INFORMATION
  Report Type: Spontaneous
  Country: US (occurrence: US)
  Receive Date: 20140430
  Receipt Date: 20140430
  Transmission Date: 20141212
  Serious: No
  Sender: FDA-Public Use
  Company Number: US-B.I. PHARMACEUTICALS,INC./RIDGEFIELD-2014-BI-18444BP

PATIENT
  Sex: Male
  Weight: 65 kg

DRUGS (2)
  1. SPIRIVA [Suspect]
     Indication: COUGH
     Dosage: 18 MCG
     Route: 055
     Dates: start: 2013
  2. ASPIRIN [Concomitant]
     Dosage: 81 MG
     Route: 048

REACTIONS (2)
  - Constipation [Not Recovered/Not Resolved]
  - Off label use [Unknown]
